FAERS Safety Report 13587247 (Version 1)
Quarter: 2017Q2

REPORT INFORMATION
  Report Type: Report from Study
  Country: US (occurrence: CA)
  Receive Date: 20170526
  Receipt Date: 20170526
  Transmission Date: 20170830
  Serious: Yes (Death)
  Sender: FDA-Public Use
  Company Number: US-SUNOVION-2017SUN002167

PATIENT
  Age: 59 Year
  Sex: Male

DRUGS (5)
  1. INDACATEROL AND GLYCOPYRROLATE [Suspect]
     Active Substance: GLYCOPYRROLATE\INDACATEROL MALEATE
     Indication: PRODUCT USED FOR UNKNOWN INDICATION
     Dosage: UNK
     Route: 055
  2. XOLAIR [Suspect]
     Active Substance: OMALIZUMAB
     Indication: ASTHMA
     Dosage: 300 MG, BIW
     Route: 058
     Dates: start: 20160112
  3. XOLAIR [Suspect]
     Active Substance: OMALIZUMAB
     Dosage: UNK
     Route: 058
     Dates: start: 20160128
  4. VENTOLIN [Concomitant]
     Active Substance: ALBUTEROL SULFATE
  5. ALVESCO [Concomitant]
     Active Substance: CICLESONIDE

REACTIONS (6)
  - Death [Fatal]
  - Respiratory rate increased [Unknown]
  - Oxygen saturation decreased [Recovering/Resolving]
  - Malaise [Unknown]
  - Heart rate increased [Unknown]
  - Dyspnoea exertional [Not Recovered/Not Resolved]

NARRATIVE: CASE EVENT DATE: 201601
